FAERS Safety Report 7657539-5 (Version None)
Quarter: 2011Q3

REPORT INFORMATION
  Report Type: 
  Country: None (occurrence: None)
  Receive Date: 20110804
  Receipt Date: 20110725
  Transmission Date: 20111222
  Serious: Yes (Hospitalization)
  Sender: FDA-Public Use
  Company Number: CA-AMGEN-CANSP2011037540

PATIENT
  Sex: Female
  Weight: 86 kg

DRUGS (10)
  1. NERISONE [Concomitant]
     Route: 061
  2. CELEXA [Concomitant]
     Dosage: 20 MG, UNK
     Route: 048
  3. LYRICA [Concomitant]
     Route: 048
  4. WELLBUTRIN XL [Concomitant]
     Route: 048
  5. LYDERM                             /00280401/ [Concomitant]
     Route: 061
  6. ENBREL [Suspect]
     Indication: PRODUCT USED FOR UNKNOWN INDICATION
     Dosage: 50 MG, QWK
     Route: 058
  7. LACTAID [Concomitant]
     Route: 048
  8. LOMOTIL [Concomitant]
     Route: 048
  9. ESTRACE [Concomitant]
     Route: 048
  10. SYNTHROID [Concomitant]
     Dosage: 112 A?G, UNK
     Route: 048

REACTIONS (9)
  - GAIT DISTURBANCE [None]
  - DIPLOPIA [None]
  - WALKING AID USER [None]
  - HEADACHE [None]
  - URINARY RETENTION [None]
  - BACK PAIN [None]
  - HYPOAESTHESIA [None]
  - HYPERAESTHESIA [None]
  - MUSCULAR WEAKNESS [None]
